FAERS Safety Report 7718034-8 (Version None)
Quarter: 2011Q3

REPORT INFORMATION
  Report Type: 
  Country: None (occurrence: None)
  Receive Date: 20110830
  Receipt Date: 20110720
  Transmission Date: 20111222
  Serious: Yes (Other)
  Sender: FDA-Public Use
  Company Number: US-AMGEN-USASP2011037133

PATIENT
  Sex: Female

DRUGS (2)
  1. NPLATE [Suspect]
     Indication: IDIOPATHIC THROMBOCYTOPENIC PURPURA
     Dates: start: 20100616, end: 20101111
  2. CORTICOSTEROIDS [Concomitant]
     Dosage: 4 A?G/KG, UNK

REACTIONS (1)
  - DRUG INEFFECTIVE [None]
